FAERS Safety Report 22635351 (Version 1)
Quarter: 2023Q2

REPORT INFORMATION
  Report Type: Spontaneous
  Country: FR (occurrence: FR)
  Receive Date: 20230623
  Receipt Date: 20230623
  Transmission Date: 20230721
  Serious: Yes (Other)
  Sender: FDA-Public Use
  Company Number: FR-AMGEN-FRASP2023106732

PATIENT

DRUGS (3)
  1. PROLIA [Suspect]
     Active Substance: DENOSUMAB
     Indication: Fibrous dysplasia of bone
     Dosage: 120 MILLIGRAM (1 INJECTION)
     Route: 065
  2. PROLIA [Suspect]
     Active Substance: DENOSUMAB
     Indication: Off label use
     Dosage: 60 MILLIGRAM (1 INJECTION)
     Route: 065
  3. TOCILIZUMAB [Concomitant]
     Active Substance: TOCILIZUMAB
     Indication: Fibrous dysplasia of bone
     Dosage: 162 MILLIGRAM, QMO

REACTIONS (4)
  - Femur fracture [Unknown]
  - Drug effective for unapproved indication [Unknown]
  - Hypophosphataemia [Unknown]
  - Off label use [Unknown]
